FAERS Safety Report 23680315 (Version 2)
Quarter: 2024Q2

REPORT INFORMATION
  Report Type: Report from Study
  Country: US (occurrence: US)
  Receive Date: 20240328
  Receipt Date: 20240621
  Transmission Date: 20240715
  Serious: Yes (Other)
  Sender: FDA-Public Use
  Company Number: US-ABBVIE-5694637

PATIENT
  Age: 64 Year
  Sex: Female

DRUGS (1)
  1. RINVOQ [Suspect]
     Active Substance: UPADACITINIB
     Indication: Dermatitis atopic
     Route: 048

REACTIONS (4)
  - Ankle fracture [Recovering/Resolving]
  - Arthralgia [Unknown]
  - Fall [Unknown]
  - Rotator cuff syndrome [Unknown]

NARRATIVE: CASE EVENT DATE: 20240315
